FAERS Safety Report 21773469 (Version 1)
Quarter: 2022Q4

REPORT INFORMATION
  Report Type: Spontaneous
  Country: US (occurrence: US)
  Receive Date: 20221223
  Receipt Date: 20221223
  Transmission Date: 20230113
  Serious: No
  Sender: FDA-Public Use
  Company Number: US-TAKEDA-2022TUS097723

PATIENT
  Age: 56 Year
  Sex: Female

DRUGS (1)
  1. HYQVIA [Suspect]
     Active Substance: HUMAN IMMUNOGLOBULIN G\HYALURONIDASE RECOMBINANT HUMAN
     Indication: Product used for unknown indication
     Dosage: 40 GRAM, Q4WEEKS
     Route: 065
     Dates: start: 20221207

REACTIONS (2)
  - Infusion site erythema [Unknown]
  - Skin mass [Unknown]
